FAERS Safety Report 23307674 (Version 1)
Quarter: 2023Q4

REPORT INFORMATION
  Report Type: Spontaneous
  Country: BG (occurrence: BG)
  Receive Date: 20231218
  Receipt Date: 20231218
  Transmission Date: 20240110
  Serious: Yes (Life-Threatening)
  Sender: FDA-Public Use
  Company Number: BG-PFIZER INC-PV202300200383

PATIENT
  Age: 63 Year
  Sex: Female

DRUGS (3)
  1. METHYLPREDNISOLONE ACETATE [Suspect]
     Active Substance: METHYLPREDNISOLONE ACETATE
     Indication: Pemphigoid
     Dosage: 40 MG
     Route: 030
  2. METHYLPREDNISOLONE ACETATE [Suspect]
     Active Substance: METHYLPREDNISOLONE ACETATE
     Dosage: 60 MG, DAILY
     Route: 030
  3. METHYLPREDNISOLONE [Suspect]
     Active Substance: METHYLPREDNISOLONE
     Indication: Pemphigoid
     Dosage: 56 MG
     Route: 048

REACTIONS (3)
  - Diabetes mellitus [Unknown]
  - Hypertension [Unknown]
  - Hyperglycaemia [Unknown]
